FAERS Safety Report 5655886-X (Version None)
Quarter: 2008Q1

REPORT INFORMATION
  Report Type: 
  Country: None (occurrence: None)
  Receive Date: 20080307
  Receipt Date: 20080229
  Transmission Date: 20080703
  Serious: Yes (Hospitalization, Other)
  Sender: FDA-Public Use
  Company Number: US-ABBOTT-06P-163-0328825-00

PATIENT
  Sex: Female
  Weight: 61.29 kg

DRUGS (6)
  1. HUMIRA [Suspect]
     Indication: RHEUMATOID ARTHRITIS
     Route: 058
     Dates: start: 20030701
  2. NAPROXEN [Concomitant]
     Indication: RHEUMATOID ARTHRITIS
     Route: 048
  3. PREDNISONE TAB [Concomitant]
     Indication: RHEUMATOID ARTHRITIS
     Route: 048
  4. MULTI-VITAMIN [Concomitant]
     Route: 048
  5. UNKNOWN PAIN MEDICATION [Concomitant]
     Indication: PAIN
     Route: 048
  6. IBANDRONATE SODIUM [Concomitant]
     Indication: OSTEOPOROSIS
     Route: 048

REACTIONS (9)
  - ANAEMIA [None]
  - ARTHRITIS [None]
  - CONTUSION [None]
  - FALL [None]
  - HIP ARTHROPLASTY [None]
  - JOINT DISLOCATION [None]
  - MUSCLE TIGHTNESS [None]
  - SURGERY [None]
  - UPPER LIMB FRACTURE [None]
